FAERS Safety Report 21642375 (Version 1)
Quarter: 2022Q4

REPORT INFORMATION
  Report Type: Report from Study
  Country: GR (occurrence: GR)
  Receive Date: 20221125
  Receipt Date: 20221125
  Transmission Date: 20230112
  Serious: Yes (Other)
  Sender: FDA-Public Use
  Company Number: GR-ABBVIE-4212532

PATIENT
  Age: 77 Year
  Sex: Male
  Weight: 99 kg

DRUGS (15)
  1. CARBIDOPA\LEVODOPA [Suspect]
     Active Substance: CARBIDOPA\LEVODOPA
     Indication: Parkinson^s disease
     Dosage: MORNING DOSE: 11.4ML; CONTINUOUS RATE: 4.2ML/H; EXTRA DOSE: 2.0ML
     Route: 050
     Dates: start: 20220707
  2. CARBIDOPA\LEVODOPA [Suspect]
     Active Substance: CARBIDOPA\LEVODOPA
  3. metformin (Glucophage) [Concomitant]
     Indication: Product used for unknown indication
     Route: 048
  4. cobalamin (B12) [Concomitant]
     Indication: Product used for unknown indication
     Route: 048
  5. LASIX [Concomitant]
     Active Substance: FUROSEMIDE
     Indication: Product used for unknown indication
     Route: 048
  6. ELIQUIS [Concomitant]
     Active Substance: APIXABAN
     Indication: Product used for unknown indication
     Dosage: 2.5MG
     Route: 048
  7. ELIQUIS [Concomitant]
     Active Substance: APIXABAN
     Indication: Product used for unknown indication
     Route: 048
  8. ipratropium (Zyrolen) [Concomitant]
     Indication: Product used for unknown indication
     Route: 055
  9. beclometasone (Becloneb) [Concomitant]
     Indication: Product used for unknown indication
     Route: 055
  10. Nathura Armonia Retard Melatonin [Concomitant]
     Indication: Product used for unknown indication
     Route: 048
  11. JANUVIA [Concomitant]
     Active Substance: SITAGLIPTIN PHOSPHATE
     Indication: Type 2 diabetes mellitus
     Route: 048
  12. donepezil (Donegal) [Concomitant]
     Indication: Product used for unknown indication
     Route: 048
  13. NEBIVOLOL TEVA [Concomitant]
     Indication: Product used for unknown indication
     Dosage: UNIT DOSE: 1.25MG / FORM STRENGTH: 5MG
     Route: 048
  14. memantine (Ebimem) [Concomitant]
     Indication: Product used for unknown indication
     Route: 048
  15. clonazepam (Clonotril) [Concomitant]
     Indication: Product used for unknown indication
     Dosage: UNIT DOSE: 0.5MG / FORM STRENGTH: 2.0MG
     Route: 048

REACTIONS (1)
  - Ischaemic stroke [Recovered/Resolved]

NARRATIVE: CASE EVENT DATE: 20220918
